FAERS Safety Report 4620900-7 (Version None)
Quarter: 2005Q1

REPORT INFORMATION
  Report Type: 
  Country: None (occurrence: None)
  Receive Date: 20050325
  Receipt Date: 20050318
  Transmission Date: 20050727
  Serious: No
  Sender: FDA-Public Use
  Company Number: 2005-126603-NL

PATIENT
  Age: 57 Year
  Sex: Male

DRUGS (5)
  1. MIRTAZAPINE [Suspect]
     Indication: DEPRESSION
     Dosage: 45 MG
     Route: 048
     Dates: end: 20050126
  2. ESCITALOPRAM OXALATE [Suspect]
     Indication: DEPRESSION
     Dosage: 10 MG QD
     Route: 048
     Dates: start: 20050119, end: 20050128
  3. AMISULPRIDE [Concomitant]
  4. ZOLPIDEM TARTRATE [Concomitant]
  5. LORAZEPAM [Concomitant]

REACTIONS (4)
  - BLOOD CREATINE PHOSPHOKINASE INCREASED [None]
  - HYPERTENSION [None]
  - SEROTONIN SYNDROME [None]
  - TACHYCARDIA [None]
